FAERS Safety Report 12115987 (Version 1)
Quarter: 2016Q1

REPORT INFORMATION
  Report Type: Spontaneous
  Country: US (occurrence: US)
  Receive Date: 20160225
  Receipt Date: 20160225
  Transmission Date: 20160526
  Serious: Yes (Hospitalization, Other)
  Sender: FDA-Public Use
  Company Number: US-TEVA-636606USA

PATIENT
  Sex: Male

DRUGS (1)
  1. PROGLYCEM SUSPENSION [Suspect]
     Active Substance: DIAZOXIDE
     Route: 065

REACTIONS (7)
  - Renal failure [Unknown]
  - Hypotension [Unknown]
  - Balance disorder [Unknown]
  - Motor dysfunction [Recovered/Resolved]
  - Blood glucose increased [Unknown]
  - Disorientation [Unknown]
  - Incoherent [Unknown]
